FAERS Safety Report 9664055 (Version 4)
Quarter: 2014Q1

REPORT INFORMATION
  Report Type: Spontaneous
  Country: IT (occurrence: IT)
  Receive Date: 20131101
  Receipt Date: 20140331
  Transmission Date: 20141002
  Serious: Yes (Hospitalization)
  Sender: FDA-Public Use
  Company Number: IT-PFIZER INC-2013311047

PATIENT
  Age: 64 Year
  Sex: Female
  Weight: 70 kg

DRUGS (2)
  1. CISPLATINO PFIZER [Suspect]
     Indication: LUNG NEOPLASM MALIGNANT
     Dosage: 135 MG, CYCLIC
     Route: 042
     Dates: start: 20130228, end: 20130418
  2. CISPLATINO PFIZER [Suspect]
     Dosage: 99 MG, CYCLIC
     Dates: start: 20130418, end: 20130509

REACTIONS (1)
  - Gastrointestinal disorder [Recovered/Resolved]
